FAERS Safety Report 9829023 (Version 1)
Quarter: 2014Q1

REPORT INFORMATION
  Report Type: Spontaneous
  Country: US (occurrence: US)
  Receive Date: 20140118
  Receipt Date: 20140118
  Transmission Date: 20141002
  Serious: Yes (Death)
  Sender: FDA-Public Use
  Company Number: US-JNJFOC-20140107099

PATIENT
  Age: 23 Year
  Sex: Female

DRUGS (4)
  1. DIPHENHYDRAMINE [Suspect]
     Route: 048
  2. DIPHENHYDRAMINE [Suspect]
     Indication: SUICIDE ATTEMPT
     Route: 048
  3. LAMOTRIGINE [Suspect]
     Indication: SUICIDE ATTEMPT
  4. CITALOPRAM [Suspect]
     Indication: SUICIDE ATTEMPT

REACTIONS (1)
  - Toxicity to various agents [Fatal]
